FAERS Safety Report 8086096-7 (Version None)
Quarter: 2012Q1

REPORT INFORMATION
  Report Type: 
  Country: None (occurrence: None)
  Receive Date: 20120128
  Receipt Date: 20110420
  Transmission Date: 20120608
  Serious: No
  Sender: FDA-Public Use
  Company Number: US-ABBOTT-11P-163-0720639-00

PATIENT
  Age: 55 Year
  Sex: Female

DRUGS (5)
  1. HUMIRA [Suspect]
     Indication: PSORIASIS
     Dates: start: 20100126
  2. LOVASTATIN [Concomitant]
     Indication: BLOOD CHOLESTEROL
     Dosage: FOR 2 YEARS
  3. GLIPIZIDE [Concomitant]
     Indication: DIABETES MELLITUS
     Dosage: FOR 2 YEARS
  4. METFFORMIN HYDROCHLORIDE [Concomitant]
     Indication: DIABETES MELLITUS
  5. DIOVAN HTP [Concomitant]
     Indication: HYPERTENSION
     Dosage: 160/12.5 FOR 4 YEARS

REACTIONS (1)
  - HEPATIC ENZYME INCREASED [None]
